FAERS Safety Report 21088930 (Version 4)
Quarter: 2022Q4

REPORT INFORMATION
  Report Type: Report from Study
  Country: AU (occurrence: AU)
  Receive Date: 20220715
  Receipt Date: 20221017
  Transmission Date: 20230112
  Serious: Yes (Other)
  Sender: FDA-Public Use
  Company Number: AU-UCBSA-2022023907

PATIENT
  Sex: Female
  Weight: 105 kg

DRUGS (9)
  1. CERTOLIZUMAB PEGOL [Suspect]
     Active Substance: CERTOLIZUMAB PEGOL
     Indication: Axial spondyloarthritis
     Dosage: 400 MILLIGRAM, EV 2 WEEKS(QOW)
     Route: 058
     Dates: start: 20220408, end: 2022
  2. CERTOLIZUMAB PEGOL [Suspect]
     Active Substance: CERTOLIZUMAB PEGOL
     Dosage: 200 MILLIGRAM, EV 2 WEEKS(QOW)
     Route: 058
     Dates: start: 2022, end: 20220617
  3. CERTOLIZUMAB PEGOL [Suspect]
     Active Substance: CERTOLIZUMAB PEGOL
     Dosage: 200 MILLIGRAM, EV 2 WEEKS(QOW)
     Route: 058
     Dates: start: 20220624, end: 202209
  4. SERTRALINE HYDROCHLORIDE [Concomitant]
     Active Substance: SERTRALINE HYDROCHLORIDE
     Indication: Product used for unknown indication
     Dosage: 60 MILLIGRAM, ONCE DAILY (QD)
     Route: 048
  5. PANADOL [Concomitant]
     Active Substance: ACETAMINOPHEN
     Indication: Product used for unknown indication
  6. PAXLOVID [Concomitant]
     Active Substance: NIRMATRELVIR\RITONAVIR
     Indication: Product used for unknown indication
  7. BUDESONIDE [Concomitant]
     Active Substance: BUDESONIDE
     Indication: Product used for unknown indication
  8. AMOXICILLIN [Concomitant]
     Active Substance: AMOXICILLIN
     Indication: Product used for unknown indication
  9. DOXYCYCLINE HYDROCHLORIDE [Concomitant]
     Active Substance: DOXYCYCLINE HYDROCHLORIDE
     Indication: Product used for unknown indication

REACTIONS (16)
  - Pneumonia [Recovering/Resolving]
  - Fatigue [Recovering/Resolving]
  - Arthralgia [Recovering/Resolving]
  - Injection site discolouration [Recovered/Resolved]
  - Dyspnoea [Recovered/Resolved]
  - Dizziness [Recovering/Resolving]
  - Influenza like illness [Recovering/Resolving]
  - Malaise [Not Recovered/Not Resolved]
  - Eye pruritus [Unknown]
  - Nasal congestion [Unknown]
  - Nausea [Recovering/Resolving]
  - Vomiting [Recovering/Resolving]
  - COVID-19 [Recovered/Resolved]
  - SARS-CoV-2 test negative [Unknown]
  - Decreased appetite [Recovering/Resolving]
  - Drug ineffective [Unknown]

NARRATIVE: CASE EVENT DATE: 20220101
